FAERS Safety Report 22278040 (Version 1)
Quarter: 2023Q2

REPORT INFORMATION
  Report Type: Spontaneous
  Country: JP (occurrence: JP)
  Receive Date: 20230503
  Receipt Date: 20230503
  Transmission Date: 20230721
  Serious: Yes (Other)
  Sender: FDA-Public Use
  Company Number: JP-SUN PHARMACEUTICAL INDUSTRIES LTD-2023RR-386959

PATIENT
  Age: 13 Year
  Sex: Male

DRUGS (6)
  1. ADAPALENE [Suspect]
     Active Substance: ADAPALENE
     Indication: Acne cystic
     Dosage: GEL
     Route: 065
  2. CYCLOSPORINE [Suspect]
     Active Substance: CYCLOSPORINE
     Dosage: 100 MILLIGRAM, DAILY
     Route: 065
  3. CYCLOSPORINE [Suspect]
     Active Substance: CYCLOSPORINE
     Dosage: 150 UNK
     Route: 065
  4. TRIAMCINOLONE [Suspect]
     Active Substance: TRIAMCINOLONE
     Indication: Acne cystic
     Dosage: LOCAL INJECTION
     Route: 065
  5. DOXYCYCLINE [Suspect]
     Active Substance: DOXYCYCLINE
     Indication: Acne cystic
     Dosage: 100 MILLIGRAM, DAILY
     Route: 065
  6. NADIFLOXACIN [Suspect]
     Active Substance: NADIFLOXACIN
     Indication: Acne cystic
     Dosage: UNK
     Route: 061

REACTIONS (2)
  - Condition aggravated [Unknown]
  - Therapeutic product effect incomplete [Unknown]
